FAERS Safety Report 9531966 (Version 1)
Quarter: 2013Q3

REPORT INFORMATION
  Report Type: Spontaneous
  Country: US (occurrence: US)
  Receive Date: 20130918
  Receipt Date: 20130918
  Transmission Date: 20140515
  Serious: Yes (Hospitalization, Other)
  Sender: FDA-Public Use
  Company Number: US-BAYER-2013-111679

PATIENT
  Age: 27 Year
  Sex: Female

DRUGS (1)
  1. MIRENA [Suspect]
     Indication: CONTRACEPTION
     Dosage: 20 ?G/D, CONT
     Route: 015
     Dates: start: 201003

REACTIONS (14)
  - Convulsion [None]
  - Dyskinesia [None]
  - Fall [None]
  - Contusion [None]
  - Rib fracture [None]
  - Pain [None]
  - Traumatic lung injury [None]
  - Dyskinesia [None]
  - Tongue biting [None]
  - Amnesia [None]
  - Anxiety [None]
  - Panic attack [None]
  - Affective disorder [None]
  - Convulsion [Not Recovered/Not Resolved]
